FAERS Safety Report 12580818 (Version 1)
Quarter: 2016Q3

REPORT INFORMATION
  Report Type: Spontaneous
  Country: US (occurrence: US)
  Receive Date: 20160721
  Receipt Date: 20160721
  Transmission Date: 20161109
  Serious: Yes (Other)
  Sender: FDA-Public Use
  Company Number: US-JNJFOC-20160711756

PATIENT
  Age: 57 Year
  Sex: Female

DRUGS (1)
  1. INVOKANA [Suspect]
     Active Substance: CANAGLIFLOZIN
     Indication: PRODUCT USED FOR UNKNOWN INDICATION
     Dosage: (FOR APPROXIMATELY ONE YEAR)
     Route: 048

REACTIONS (4)
  - Leg amputation [Unknown]
  - Foot amputation [Unknown]
  - Toe amputation [Unknown]
  - Infection [Unknown]

NARRATIVE: CASE EVENT DATE: 2016
